FAERS Safety Report 10525084 (Version 1)
Quarter: 2014Q4

REPORT INFORMATION
  Report Type: Spontaneous
  Country: US (occurrence: None)
  Receive Date: 20141015
  Receipt Date: 20141015
  Transmission Date: 20150528
  Serious: Yes (Hospitalization)
  Sender: FDA-Public Use
  Company Number: None

PATIENT
  Age: 28 Year
  Sex: Male
  Weight: 61.24 kg

DRUGS (1)
  1. CIPROFLOXACIN. [Suspect]
     Active Substance: CIPROFLOXACIN
     Indication: PARASITIC GASTROENTERITIS
     Dosage: TAKEN BY MOUTH
     Dates: start: 20140513, end: 20140513

REACTIONS (5)
  - Anxiety [None]
  - Rash [None]
  - Irritable bowel syndrome [None]
  - Panic attack [None]
  - Nervous system disorder [None]

NARRATIVE: CASE EVENT DATE: 20140513
